FAERS Safety Report 5870454-2 (Version None)
Quarter: 2008Q3

REPORT INFORMATION
  Report Type: 
  Country: None (occurrence: None)
  Receive Date: 20080904
  Receipt Date: 20080522
  Transmission Date: 20090109
  Serious: Yes (Life-Threatening)
  Sender: FDA-Public Use
  Company Number: US-BRISTOL-MYERS SQUIBB COMPANY-14172407

PATIENT
  Age: 83 Year
  Sex: Female
  Weight: 77 kg

DRUGS (7)
  1. DEFINITY [Suspect]
     Indication: CARDIAC PHARMACOLOGIC STRESS TEST
     Dosage: 3CC.
     Route: 042
     Dates: start: 20080429
  2. LISINOPRIL [Concomitant]
  3. LASIX [Concomitant]
  4. HYDROCHLOROTHIAZIDE [Concomitant]
  5. ATENOLOL [Concomitant]
  6. ATROPINE [Concomitant]
  7. DEXAMPHETAMINE [Concomitant]

REACTIONS (1)
  - RESPIRATORY DISORDER [None]
